FAERS Safety Report 14655027 (Version 1)
Quarter: 2018Q1

REPORT INFORMATION
  Report Type: Spontaneous
  Country: PK (occurrence: PK)
  Receive Date: 20180319
  Receipt Date: 20180319
  Transmission Date: 20180509
  Serious: Yes (Hospitalization, Other)
  Sender: FDA-Public Use
  Company Number: PK-MYLANLABS-2018M1016284

PATIENT
  Age: 40 Year
  Sex: Female

DRUGS (1)
  1. NORETHISTERONE [Suspect]
     Active Substance: NORETHINDRONE
     Indication: MENSTRUATION IRREGULAR
     Dosage: 5 MG, THRICE DAILY FOR 21 DAYS EVERY MONTH FOR PAST THREE MONTHS
     Route: 048

REACTIONS (1)
  - Intracranial venous sinus thrombosis [Recovered/Resolved]
